FAERS Safety Report 19084090 (Version 1)
Quarter: 2021Q2

REPORT INFORMATION
  Report Type: Spontaneous
  Country: CN (occurrence: CN)
  Receive Date: 20210401
  Receipt Date: 20210401
  Transmission Date: 20210717
  Serious: Yes (Hospitalization)
  Sender: FDA-Public Use
  Company Number: CN-BAXTER-2021BAX006136

PATIENT
  Age: 62 Year
  Sex: Female
  Weight: 42.8 kg

DRUGS (12)
  1. 0.9% SODIUM CHLORIDE INJECTION [Suspect]
     Active Substance: SODIUM CHLORIDE
     Dosage: 0.9% SODIUM CHLORIDE + VINCRISTINE SULFATE 1.8 MG
     Route: 041
     Dates: start: 20210221, end: 20210221
  2. 5% GLUCOSE  INJECTION [Suspect]
     Active Substance: DEXTROSE
     Dosage: DOSE RE?INTRODUCED, 5% GLUCOSE + PIRARUBICIN HYDROCHLORIDE
     Route: 041
     Dates: start: 202103, end: 202103
  3. ENDOXAN [Suspect]
     Active Substance: CYCLOPHOSPHAMIDE
     Dosage: DOSE RE?INTRODUCED, CYCLOPHOSPHAMIDE + 0.9% SODIUM CHLORIDE
     Route: 041
     Dates: start: 202103, end: 202103
  4. 0.9% SODIUM CHLORIDE INJECTION [Suspect]
     Active Substance: SODIUM CHLORIDE
     Indication: MEDICATION DILUTION
     Dosage: 0.9% SODIUM CHLORIDE + CYCLOPHOSPHAMIDE 950 MG
     Route: 041
     Dates: start: 20210221, end: 20210221
  5. 5% GLUCOSE  INJECTION [Suspect]
     Active Substance: DEXTROSE
     Indication: MEDICATION DILUTION
     Dosage: 5% GLUCOSE + PIRARUBICIN HYDROCHLORIDE 60 MG
     Route: 041
     Dates: start: 20210221, end: 20210221
  6. VINCRISTINE SULFATE. [Suspect]
     Active Substance: VINCRISTINE SULFATE
     Indication: DIFFUSE LARGE B-CELL LYMPHOMA
     Dosage: VINCRISTINE SULFATE + 0.9% SODIUM CHLORIDE 100 ML
     Route: 041
     Dates: start: 20210221, end: 20210221
  7. VINCRISTINE SULFATE. [Suspect]
     Active Substance: VINCRISTINE SULFATE
     Dosage: DOSE RE?INTRODUCED, VINCRISTINE SULFATE + 0.9% SODIUM CHLORIDE
     Route: 041
     Dates: start: 202103, end: 202103
  8. 0.9% SODIUM CHLORIDE INJECTION [Suspect]
     Active Substance: SODIUM CHLORIDE
     Dosage: DOSE RE?INTRODUCED, 0.9% SODIUM CHLORIDE + VINCRISTINE SULFATE
     Route: 041
     Dates: start: 202103, end: 202103
  9. 0.9% SODIUM CHLORIDE INJECTION [Suspect]
     Active Substance: SODIUM CHLORIDE
     Dosage: DOSE RE?INTRODUCED, 0.9% SODIUM CHLORIDE + CYCLOPHOSPHAMIDE
     Route: 041
     Dates: start: 202103, end: 202103
  10. PIRARUBICIN HYDROCHLORIDE [Suspect]
     Active Substance: PIRARUBICIN HYDROCHLORIDE
     Indication: DIFFUSE LARGE B-CELL LYMPHOMA
     Dosage: PIRARUBICIN HYDROCHLORIDE + 5% GLUCOSE 500 ML
     Route: 041
     Dates: start: 20210221, end: 20210221
  11. PIRARUBICIN HYDROCHLORIDE [Suspect]
     Active Substance: PIRARUBICIN HYDROCHLORIDE
     Dosage: DOSE RE?INTRODUCED, PIRARUBICIN HYDROCHLORIDE + 5% GLUCOSE
     Route: 041
     Dates: start: 202103, end: 202103
  12. ENDOXAN [Suspect]
     Active Substance: CYCLOPHOSPHAMIDE
     Indication: DIFFUSE LARGE B-CELL LYMPHOMA
     Dosage: CYCLOPHOSPHAMIDE + 0.9% SODIUM CHLORIDE100 ML
     Route: 041
     Dates: start: 20210221, end: 20210221

REACTIONS (1)
  - Granulocytopenia [Recovering/Resolving]

NARRATIVE: CASE EVENT DATE: 20210316
